FAERS Safety Report 6775286 (Version 4)
Quarter: 2014Q1

REPORT INFORMATION
  Report Type: Spontaneous
  Country: US (occurrence: US)
  Receive Date: 20080930
  Receipt Date: 20140307
  Transmission Date: 20141002
  Serious: Yes (Other)
  Sender: FDA-Public Use
  Company Number: US-JNJFOC-20080904558

PATIENT
  Age: 15 Year
  Sex: Male
  Weight: 55 kg

DRUGS (5)
  1. REMICADE [Suspect]
     Indication: CROHN^S DISEASE
     Route: 042
  2. REMICADE [Suspect]
     Indication: CROHN^S DISEASE
     Route: 042
     Dates: end: 20080904
  3. REMICADE [Suspect]
     Indication: CROHN^S DISEASE
     Route: 042
     Dates: start: 20060306
  4. 6-MP [Concomitant]
     Route: 065
  5. AZATHIOPRINE [Concomitant]
     Route: 065

REACTIONS (2)
  - Hodgkin^s disease nodular sclerosis [Recovered/Resolved]
  - Systemic lupus erythematosus [Recovered/Resolved]
